FAERS Safety Report 16482698 (Version 4)
Quarter: 2020Q2

REPORT INFORMATION
  Report Type: Spontaneous
  Country: FR (occurrence: FR)
  Receive Date: 20190627
  Receipt Date: 20200528
  Transmission Date: 20200713
  Serious: Yes (Hospitalization, Other)
  Sender: FDA-Public Use
  Company Number: PHHY2019FR141385

PATIENT
  Age: 61 Year
  Sex: Male

DRUGS (6)
  1. IMATINIB. [Suspect]
     Active Substance: IMATINIB MESYLATE
     Indication: CHRONIC MYELOID LEUKAEMIA
     Dosage: 600 MG, DAILY
     Route: 065
     Dates: start: 200605, end: 200812
  2. NILOTINIB [Suspect]
     Active Substance: NILOTINIB
     Dosage: 400 MG, (IN THE EVENING)
     Route: 065
     Dates: start: 201012, end: 201508
  3. NILOTINIB [Suspect]
     Active Substance: NILOTINIB
     Indication: CHRONIC MYELOID LEUKAEMIA
     Dosage: 200 MG, UNK (200 MG IN THE MORNING)
     Route: 065
     Dates: start: 201012, end: 201508
  4. BOSUTINIB [Suspect]
     Active Substance: BOSUTINIB
     Indication: CHRONIC MYELOID LEUKAEMIA
     Dosage: 400 MG, DAILY
     Route: 065
     Dates: start: 201508, end: 201805
  5. IMATINIB. [Suspect]
     Active Substance: IMATINIB MESYLATE
     Indication: SYSTEMIC SCLERODERMA
  6. DASATINIB. [Suspect]
     Active Substance: DASATINIB
     Indication: CHRONIC MYELOID LEUKAEMIA
     Dosage: 100 MG, DAILY
     Route: 065
     Dates: start: 200812, end: 201012

REACTIONS (7)
  - Carotid artery stenosis [Recovered/Resolved]
  - Carotid arteriosclerosis [Recovering/Resolving]
  - Hypertension [Unknown]
  - Blood cholesterol increased [Unknown]
  - Arteriosclerosis [Unknown]
  - Weight increased [Unknown]
  - Low density lipoprotein increased [Unknown]

NARRATIVE: CASE EVENT DATE: 2014
